FAERS Safety Report 5040998-4 (Version None)
Quarter: 2006Q3

REPORT INFORMATION
  Report Type: 
  Country: None (occurrence: None)
  Receive Date: 20060703
  Receipt Date: 20050729
  Transmission Date: 20061208
  Serious: No
  Sender: FDA-Public Use
  Company Number: US-GLAXOSMITHKLINE-A0568272A

PATIENT
  Age: 65 Year
  Sex: Male
  Weight: 88.6 kg

DRUGS (3)
  1. PARNATE [Suspect]
     Indication: DEPRESSION
     Dosage: 30MG PER DAY
     Route: 048
     Dates: start: 20041101
  2. ATENOLOL [Concomitant]
     Dosage: 100MG PER DAY
     Dates: start: 19860101
  3. ASPIRIN [Concomitant]
     Dosage: 325MG PER DAY
     Dates: start: 19800101

REACTIONS (5)
  - DERMATITIS [None]
  - DERMATITIS ACNEIFORM [None]
  - FOLLICULITIS [None]
  - RASH PAPULAR [None]
  - SECRETION DISCHARGE [None]
